FAERS Safety Report 8780035 (Version 1)
Quarter: 2012Q4

REPORT INFORMATION
  Report Type: Spontaneous
  Country: US (occurrence: None)
  Receive Date: 20120831
  Receipt Date: 20120831
  Transmission Date: 20130627
  Serious: No
  Sender: FDA-Public Use
  Company Number: None

PATIENT
  Age: 46 Year
  Sex: Male

DRUGS (2)
  1. AVASTIN [Suspect]
  2. PEMETREXED [Suspect]

REACTIONS (7)
  - Sepsis [None]
  - Nausea [None]
  - Vomiting [None]
  - Wound infection [None]
  - Dehydration [None]
  - Failure to thrive [None]
  - Aphagia [None]
